FAERS Safety Report 18080602 (Version 1)
Quarter: 2020Q3

REPORT INFORMATION
  Report Type: Other
  Country: US (occurrence: US)
  Receive Date: 20200728
  Receipt Date: 20200728
  Transmission Date: 20201103
  Serious: Yes (Other)
  Sender: FDA-Public Use
  Company Number: US-ROCHE-2647529

PATIENT
  Age: 56 Year
  Sex: Female
  Weight: 66.74 kg

DRUGS (13)
  1. PROZAC [Concomitant]
     Active Substance: FLUOXETINE HYDROCHLORIDE
     Indication: DEPRESSION
  2. LITHIUM. [Concomitant]
     Active Substance: LITHIUM
     Indication: DEPRESSION
  3. BACLOFEN. [Concomitant]
     Active Substance: BACLOFEN
     Indication: MUSCLE SPASMS
     Route: 048
     Dates: start: 2017
  4. TURMERIC [Concomitant]
     Active Substance: HERBALS\TURMERIC
     Indication: INFLAMMATION
     Route: 048
     Dates: start: 20200720
  5. ATORVASTATIN [Concomitant]
     Active Substance: ATORVASTATIN
     Indication: BLOOD CHOLESTEROL INCREASED
     Route: 048
     Dates: start: 2004
  6. SERRAPEPTASE [Concomitant]
     Active Substance: SERRAPEPTASE
     Route: 048
     Dates: start: 20200721
  7. PROZAC [Concomitant]
     Active Substance: FLUOXETINE HYDROCHLORIDE
     Indication: ANXIETY
     Route: 048
  8. OCREVUS [Suspect]
     Active Substance: OCRELIZUMAB
     Indication: PRIMARY PROGRESSIVE MULTIPLE SCLEROSIS
     Dosage: YES
     Route: 042
     Dates: start: 20191019
  9. VITAMIN D3 [Concomitant]
     Active Substance: CHOLECALCIFEROL
     Route: 048
     Dates: start: 201908
  10. BENADRYL [Concomitant]
     Active Substance: DIPHENHYDRAMINE HYDROCHLORIDE
     Route: 048
     Dates: start: 2018
  11. LITHIUM. [Concomitant]
     Active Substance: LITHIUM
     Indication: ANXIETY
     Route: 048
     Dates: start: 2016
  12. CARBAMAZEPINE. [Concomitant]
     Active Substance: CARBAMAZEPINE
     Indication: PAIN
     Route: 048
     Dates: start: 2018
  13. D?MANNOSE [Concomitant]
     Route: 048
     Dates: start: 20200721

REACTIONS (1)
  - Urinary tract infection [Not Recovered/Not Resolved]

NARRATIVE: CASE EVENT DATE: 202006
